FAERS Safety Report 14354379 (Version 1)
Quarter: 2018Q1

REPORT INFORMATION
  Report Type: Spontaneous
  Country: NL (occurrence: NL)
  Receive Date: 20180105
  Receipt Date: 20180105
  Transmission Date: 20180509
  Serious: Yes (Other)
  Sender: FDA-Public Use
  Company Number: NL-CIPLA LTD.-2017NL30312

PATIENT

DRUGS (3)
  1. FLUOXETINE [Suspect]
     Active Substance: FLUOXETINE HYDROCHLORIDE
     Indication: PAIN
     Dosage: 20 MG
     Route: 065
     Dates: start: 2011, end: 20170717
  2. FLUOXETINE [Suspect]
     Active Substance: FLUOXETINE HYDROCHLORIDE
     Indication: DEPRESSION
  3. BUPROPION. [Suspect]
     Active Substance: BUPROPION
     Indication: PRODUCT USED FOR UNKNOWN INDICATION
     Dosage: UNK
     Route: 065

REACTIONS (10)
  - Mental disorder [Unknown]
  - Fatigue [Unknown]
  - Diarrhoea [Unknown]
  - Emotional poverty [Recovered/Resolved]
  - Hypersensitivity [Unknown]
  - Withdrawal syndrome [Unknown]
  - Irritable bowel syndrome [Unknown]
  - Ocular hyperaemia [Recovered/Resolved]
  - Panic attack [Unknown]
  - Abdominal discomfort [Recovered/Resolved]

NARRATIVE: CASE EVENT DATE: 1970
